FAERS Safety Report 22004928 (Version 4)
Quarter: 2023Q2

REPORT INFORMATION
  Report Type: Spontaneous
  Country: US (occurrence: US)
  Receive Date: 20230217
  Receipt Date: 20230426
  Transmission Date: 20230722
  Serious: Yes (Hospitalization)
  Sender: FDA-Public Use
  Company Number: US-PFIZER INC-PV202300029442

PATIENT
  Age: 49 Year
  Sex: Male

DRUGS (1)
  1. INLYTA [Suspect]
     Active Substance: AXITINIB
     Dosage: 5 MG
     Dates: end: 20230308

REACTIONS (10)
  - Hypersensitivity [Unknown]
  - Dizziness [Unknown]
  - Blood pressure increased [Unknown]
  - Arthralgia [Unknown]
  - Pain in extremity [Unknown]
  - Nail bed disorder [Unknown]
  - Chills [Unknown]
  - Pyrexia [Unknown]
  - Rash [Unknown]
  - Pain [Unknown]
